FAERS Safety Report 4845162-7 (Version None)
Quarter: 2005Q4

REPORT INFORMATION
  Report Type: 
  Country: None (occurrence: None)
  Receive Date: 20051205
  Receipt Date: 20050802
  Transmission Date: 20060501
  Serious: Yes (Other)
  Sender: FDA-Public Use
  Company Number: AU-ROCHE-412632

PATIENT
  Age: 34 Year
  Sex: Male

DRUGS (7)
  1. VALCYTE [Suspect]
     Route: 048
     Dates: start: 20041215, end: 20050216
  2. CELLCEPT [Suspect]
     Indication: IMMUNOSUPPRESSION
     Route: 048
     Dates: start: 20041215, end: 20050217
  3. COTRIMOXAZOLE [Suspect]
     Dosage: DAILY.
     Route: 048
     Dates: start: 20041215
  4. NEORAL [Concomitant]
     Indication: IMMUNOSUPPRESSION
     Route: 048
     Dates: start: 20041215
  5. PREDNISOLONE [Concomitant]
     Indication: IMMUNOSUPPRESSION
     Route: 048
     Dates: start: 20041215
  6. DILTIAZEM HCL [Concomitant]
     Route: 048
  7. RANITIDINE [Concomitant]
     Route: 048

REACTIONS (1)
  - LEUKOPENIA [None]
